FAERS Safety Report 5909229-4 (Version None)
Quarter: 2008Q4

REPORT INFORMATION
  Report Type: 
  Country: None (occurrence: None)
  Receive Date: 20081006
  Receipt Date: 20080930
  Transmission Date: 20090506
  Serious: Yes (Death)
  Sender: FDA-Public Use
  Company Number: PHHY2008JP23074

PATIENT

DRUGS (1)
  1. EXJADE [Suspect]
     Indication: IRON OVERLOAD
     Route: 048

REACTIONS (2)
  - BLAST CELL CRISIS [None]
  - MYELODYSPLASTIC SYNDROME [None]
